FAERS Safety Report 9657097 (Version 1)
Quarter: 2013Q4

REPORT INFORMATION
  Report Type: Spontaneous
  Country: FR (occurrence: FR)
  Receive Date: 20131030
  Receipt Date: 20131030
  Transmission Date: 20140711
  Serious: Yes (Hospitalization, Other)
  Sender: FDA-Public Use
  Company Number: FR-ASTRAZENECA-2013SE78390

PATIENT
  Age: 19509 Day
  Sex: Male

DRUGS (8)
  1. INEXIUM [Suspect]
     Route: 048
     Dates: end: 20130919
  2. CELLCEPT [Suspect]
     Route: 048
     Dates: start: 201303, end: 20130918
  3. ROVALCYTE [Suspect]
     Route: 048
     Dates: start: 201303, end: 20130918
  4. BACTRIM [Suspect]
     Route: 048
     Dates: start: 201303, end: 20130919
  5. NEORAL [Concomitant]
  6. CORTANCYL [Concomitant]
  7. AMLOR [Concomitant]
  8. MIMPARA [Concomitant]

REACTIONS (4)
  - Lymphopenia [Recovered/Resolved]
  - Malaria [Unknown]
  - Neutropenia [Recovered/Resolved]
  - Tubulointerstitial nephritis [Unknown]
